FAERS Safety Report 18354582 (Version 2)
Quarter: 2020Q4

REPORT INFORMATION
  Report Type: Spontaneous
  Country: JP (occurrence: JP)
  Receive Date: 20201007
  Receipt Date: 20201016
  Transmission Date: 20210114
  Serious: Yes (Death, Other)
  Sender: FDA-Public Use
  Company Number: JP-ACCORD-204354

PATIENT
  Age: 65 Year
  Sex: Male

DRUGS (4)
  1. IRINOTECAN [Suspect]
     Active Substance: IRINOTECAN
     Indication: PANCREATIC CARCINOMA
     Dates: start: 201801, end: 201809
  2. OXALIPLATIN. [Suspect]
     Active Substance: OXALIPLATIN
     Indication: PANCREATIC CARCINOMA
     Dates: start: 201801, end: 201809
  3. FLUOROURACIL. [Suspect]
     Active Substance: FLUOROURACIL
     Indication: PANCREATIC CARCINOMA
     Dates: start: 201801, end: 201809
  4. FOLINIC ACID [Suspect]
     Active Substance: LEUCOVORIN
     Indication: PANCREATIC CARCINOMA
     Dates: start: 201801, end: 201809

REACTIONS (4)
  - Dysgeusia [Unknown]
  - Neuralgia [Unknown]
  - Renal impairment [Unknown]
  - Neutropenia [Unknown]

NARRATIVE: CASE EVENT DATE: 2018
